FAERS Safety Report 19362285 (Version 4)
Quarter: 2021Q4

REPORT INFORMATION
  Report Type: Report from Study
  Country: US (occurrence: US)
  Receive Date: 20210601
  Receipt Date: 20211019
  Transmission Date: 20220303
  Serious: Yes (Hospitalization)
  Sender: FDA-Public Use
  Company Number: US-ETON PHARMACEUTICALS, INC-2021ETO000057

PATIENT

DRUGS (7)
  1. ALKINDI SPRINKLE [Suspect]
     Active Substance: HYDROCORTISONE
     Indication: Adrenogenital syndrome
     Dosage: 1 MG, Q8H
     Route: 048
     Dates: start: 20210107, end: 20210812
  2. ALKINDI SPRINKLE [Suspect]
     Active Substance: HYDROCORTISONE
     Dosage: 0.5 MG, Q8H
     Route: 048
     Dates: start: 20210107, end: 20210812
  3. ALKINDI SPRINKLE [Suspect]
     Active Substance: HYDROCORTISONE
     Dosage: 4.5 MG, Q8H
     Route: 048
     Dates: start: 20210430
  4. FLUDROCORTISONE [Concomitant]
     Active Substance: FLUDROCORTISONE
     Indication: Product used for unknown indication
     Dosage: 0.1 MG, BID
     Route: 048
  5. VITAMINS [Concomitant]
     Active Substance: VITAMINS
     Indication: Product used for unknown indication
     Dosage: UNK
     Route: 048
  6. REMICADE [Concomitant]
     Active Substance: INFLIXIMAB
     Indication: Product used for unknown indication
     Dosage: UNK
  7. METHOTREXATE [Concomitant]
     Active Substance: METHOTREXATE
     Indication: Product used for unknown indication
     Dosage: UNK

REACTIONS (6)
  - Rectal haemorrhage [Unknown]
  - Anaemia [Unknown]
  - Inflammatory bowel disease [Unknown]
  - Yellow skin [Unknown]
  - Decreased activity [Unknown]
  - Pyrexia [Unknown]

NARRATIVE: CASE EVENT DATE: 20210430
